FAERS Safety Report 6518385-9 (Version None)
Quarter: 2009Q4

REPORT INFORMATION
  Report Type: 
  Country: None (occurrence: None)
  Receive Date: 20091224
  Receipt Date: 20091208
  Transmission Date: 20100525
  Serious: Yes (Other)
  Sender: FDA-Public Use
  Company Number: CA-GENENTECH-296206

PATIENT
  Sex: Female
  Weight: 56 kg

DRUGS (1)
  1. XOLAIR [Suspect]
     Indication: ASTHMA
     Dosage: 375 MG, QOW
     Route: 058
     Dates: start: 20080919

REACTIONS (2)
  - BLOOD PRESSURE DECREASED [None]
  - FRACTURE [None]
